FAERS Safety Report 21593107 (Version 2)
Quarter: 2022Q4

REPORT INFORMATION
  Report Type: Spontaneous
  Country: US (occurrence: US)
  Receive Date: 20221114
  Receipt Date: 20221209
  Transmission Date: 20230113
  Serious: Yes (Other)
  Sender: FDA-Public Use
  Company Number: US-BEH-2022151920

PATIENT
  Age: 15 Year
  Sex: Female

DRUGS (5)
  1. HUMAN RHO(D) IMMUNE GLOBULIN [Suspect]
     Active Substance: HUMAN RHO(D) IMMUNE GLOBULIN
     Indication: Prophylaxis against Rh isoimmunisation
     Dosage: AT 28 WEEKS OF GESTATION
     Route: 065
  2. HUMAN RHO(D) IMMUNE GLOBULIN [Suspect]
     Active Substance: HUMAN RHO(D) IMMUNE GLOBULIN
     Dosage: 5 VIALS
     Route: 030
  3. HUMAN RHO(D) IMMUNE GLOBULIN [Suspect]
     Active Substance: HUMAN RHO(D) IMMUNE GLOBULIN
     Dosage: 3 VIALS
     Route: 030
  4. HUMAN RHO(D) IMMUNE GLOBULIN [Suspect]
     Active Substance: HUMAN RHO(D) IMMUNE GLOBULIN
     Dosage: 5 VIALS
     Route: 030
  5. HUMAN RHO(D) IMMUNE GLOBULIN [Suspect]
     Active Substance: HUMAN RHO(D) IMMUNE GLOBULIN
     Dosage: 3 VIALS
     Route: 042

REACTIONS (8)
  - Stillbirth [Not Recovered/Not Resolved]
  - Foetal hypokinesia [Not Recovered/Not Resolved]
  - Maternal exposure during pregnancy [Not Recovered/Not Resolved]
  - Foetal-maternal haemorrhage [Unknown]
  - Maternal exposure during pregnancy [Unknown]
  - Discomfort [Unknown]
  - Off label use [Unknown]
  - Maternal exposure during pregnancy [Unknown]
